FAERS Safety Report 5479642-0 (Version None)
Quarter: 2007Q4

REPORT INFORMATION
  Report Type: 
  Country: None (occurrence: None)
  Receive Date: 20071008
  Receipt Date: 20071003
  Transmission Date: 20080405
  Serious: Yes (Hospitalization)
  Sender: FDA-Public Use
  Company Number: A0685938A

PATIENT
  Age: 73 Year
  Sex: Male

DRUGS (13)
  1. SEREVENT [Suspect]
     Indication: ASTHMA
     Dosage: 1PUFF TWICE PER DAY
     Route: 055
     Dates: start: 19920101
  2. POTASSIUM CHLORIDE [Concomitant]
  3. INDOMETHACIN [Concomitant]
  4. LEVOTHROID [Concomitant]
  5. CEFPODOXIME PROXETIL [Concomitant]
  6. COREG [Concomitant]
  7. LEVOTHYROXINE SODIUM [Concomitant]
  8. ALTACE [Concomitant]
  9. WARFARIN SODIUM [Concomitant]
  10. DIGOXIN [Concomitant]
  11. FUROSEMIDE [Concomitant]
  12. ALBUTEROL [Concomitant]
  13. AEROBID [Concomitant]

REACTIONS (3)
  - ASTHMA [None]
  - DRUG ADMINISTRATION ERROR [None]
  - PNEUMONIA [None]
